FAERS Safety Report 25545159 (Version 3)
Quarter: 2025Q3

REPORT INFORMATION
  Report Type: Spontaneous
  Country: JP (occurrence: JP)
  Receive Date: 20250711
  Receipt Date: 20250829
  Transmission Date: 20251020
  Serious: Yes (Hospitalization)
  Sender: AKEBIA THERAPEUTICS
  Company Number: JP-JT-JT2024JP000239AA

PATIENT
  Age: 78 Year
  Sex: Female

DRUGS (14)
  1. FERRIC CITRATE ANHYDROUS [Suspect]
     Active Substance: FERRIC CITRATE ANHYDROUS
     Indication: Iron deficiency anaemia
     Dosage: 250 MILLIGRAM, QD
     Route: 048
  2. ENARODUSTAT [Suspect]
     Active Substance: ENARODUSTAT
     Indication: Nephrogenic anaemia
     Dosage: 2 MILLIGRAM, QD
     Route: 048
     Dates: start: 20240517, end: 20240518
  3. MIRABEGRON [Concomitant]
     Active Substance: MIRABEGRON
     Indication: Hypertonic bladder
     Dosage: 50 MILLIGRAM, QD
     Route: 048
  4. TACROLIMUS [Concomitant]
     Active Substance: TACROLIMUS
     Indication: Prophylaxis
     Dosage: 1 MILLIGRAM, QD
     Route: 048
  5. CELLCEPT [Concomitant]
     Active Substance: MYCOPHENOLATE MOFETIL
     Indication: Prophylaxis
     Dosage: 500 MILLIGRAM, BID
     Route: 048
  6. AMLODIPINE BESYLATE [Concomitant]
     Active Substance: AMLODIPINE BESYLATE
     Indication: Hypertension
     Dosage: 5 MILLIGRAM, QD
     Route: 048
  7. AZILSARTAN KAMEDOXOMIL [Concomitant]
     Active Substance: AZILSARTAN KAMEDOXOMIL
     Indication: Hypertension
     Dosage: 20 MILLIGRAM, QD
     Route: 048
  8. LEVOTHYROXINE SODIUM [Concomitant]
     Active Substance: LEVOTHYROXINE SODIUM
     Indication: Hypothyroidism
     Dosage: 50 MICROGRAM, QD
     Route: 048
  9. ASPIRIN [Concomitant]
     Active Substance: ASPIRIN
     Indication: Peripheral artery stenosis
     Dosage: 100 MILLIGRAM, QD
     Route: 048
  10. VONOPRAZAN FUMARATE [Concomitant]
     Active Substance: VONOPRAZAN FUMARATE
     Indication: Gastrooesophageal reflux disease
     Dosage: 10 MILLIGRAM, QD
     Route: 048
  11. ORYCTOLAGUS CUNICULUS SKIN [Concomitant]
     Active Substance: ORYCTOLAGUS CUNICULUS SKIN
     Indication: Prophylaxis
     Dosage: 8 UNIT, BID
     Route: 048
  12. DIETARY SUPPLEMENT\PROBIOTICS [Concomitant]
     Active Substance: DIETARY SUPPLEMENT\PROBIOTICS NOS
     Indication: Diarrhoea
     Dosage: 1.5 GRAM, TID
     Route: 048
  13. FLUNITRAZEPAM [Concomitant]
     Active Substance: FLUNITRAZEPAM
     Indication: Insomnia
     Dosage: 2 MILLIGRAM, QD
     Route: 048
  14. TOPIROXOSTAT [Concomitant]
     Active Substance: TOPIROXOSTAT
     Indication: Hyperuricaemia
     Dosage: 40 MILLIGRAM, BID
     Route: 048

REACTIONS (2)
  - Asthenia [Recovering/Resolving]
  - Cerebral infarction [Recovered/Resolved]

NARRATIVE: CASE EVENT DATE: 20240518
